FAERS Safety Report 9189356 (Version 1)
Quarter: 2013Q1

REPORT INFORMATION
  Report Type: Spontaneous
  Country: CA (occurrence: CA)
  Receive Date: 20130326
  Receipt Date: 20130326
  Transmission Date: 20140127
  Serious: Yes (Hospitalization)
  Sender: FDA-Public Use
  Company Number: CHPA2013CA005102

PATIENT
  Sex: Female

DRUGS (1)
  1. DICLOFENAC DIETHYLAMMONIUM SALT [Suspect]
     Indication: MYALGIA
     Dosage: UNK, QID
     Route: 061

REACTIONS (2)
  - Cardiac disorder [Unknown]
  - Concomitant disease aggravated [Unknown]
